FAERS Safety Report 8998660 (Version 2)
Quarter: 2013Q1

REPORT INFORMATION
  Report Type: Spontaneous
  Country: US (occurrence: US)
  Receive Date: 20130103
  Receipt Date: 20130125
  Transmission Date: 20140127
  Serious: No
  Sender: FDA-Public Use
  Company Number: US-009507513-1212USA006215

PATIENT
  Sex: 0

DRUGS (1)
  1. DULERA [Suspect]
     Dosage: 2 DF, BID
     Route: 055
     Dates: start: 20121127

REACTIONS (3)
  - Drug dose omission [Unknown]
  - Device malfunction [Unknown]
  - No adverse event [Unknown]
